FAERS Safety Report 18464211 (Version 2)
Quarter: 2020Q4

REPORT INFORMATION
  Report Type: Spontaneous
  Country: US (occurrence: US)
  Receive Date: 20201104
  Receipt Date: 20201118
  Transmission Date: 20210114
  Serious: Yes (Disabling)
  Sender: FDA-Public Use
  Company Number: US-PFIZER INC-2020426262

PATIENT
  Age: 70 Year
  Sex: Male
  Weight: 83.91 kg

DRUGS (3)
  1. CHANTIX [Suspect]
     Active Substance: VARENICLINE TARTRATE
     Dosage: 0.5 MG, DAILY (STRENGTH: 0.5 MG DAILY/QUANTITY FOR 90 DAYS: 3 (DAYS 1-3))
  2. CHANTIX [Suspect]
     Active Substance: VARENICLINE TARTRATE
     Indication: SMOKING CESSATION THERAPY
     Dosage: 1 MG, 2X/DAY (1MG TWICE DAILY)
  3. CHANTIX [Suspect]
     Active Substance: VARENICLINE TARTRATE
     Dosage: 0.5 MG, 2X/DAY (STRENGTH: 0.5 MG BID/QUANTITY FOR 90 DAYS: 4 (DAYS 4-7))

REACTIONS (1)
  - Hearing disability [Unknown]
